FAERS Safety Report 7503416-X (Version None)
Quarter: 2011Q2

REPORT INFORMATION
  Report Type: 
  Country: None (occurrence: None)
  Receive Date: 20110525
  Receipt Date: 20110517
  Transmission Date: 20111010
  Serious: Yes (Other)
  Sender: FDA-Public Use
  Company Number: B0721766A

PATIENT
  Age: 63 Year
  Sex: Female

DRUGS (9)
  1. ESCITALOPRAM [Concomitant]
     Dosage: 10MG PER DAY
     Route: 048
     Dates: start: 20100407, end: 20100503
  2. VALDOXAN [Suspect]
     Dosage: 25MG PER DAY
     Route: 048
     Dates: start: 20100510
  3. MOTRIM [Concomitant]
     Indication: URINARY TRACT INFECTION
     Dosage: 400MG PER DAY
     Route: 048
     Dates: start: 20100610, end: 20100616
  4. WELLBUTRIN [Suspect]
     Dosage: 150MG PER DAY
     Route: 048
     Dates: start: 20100618, end: 20100701
  5. AMITRIPTYLINE HCL [Concomitant]
     Dosage: 35MG PER DAY
     Route: 048
     Dates: start: 20100702, end: 20100706
  6. MIRTAZAPINE [Concomitant]
     Dosage: 15MG PER DAY
     Route: 048
     Dates: start: 20100407, end: 20100517
  7. NOVOTHYRAL [Concomitant]
     Dosage: .5MG PER DAY
     Route: 048
     Dates: start: 20100407
  8. ZYPREXA [Suspect]
     Dosage: 5MG PER DAY
     Route: 048
     Dates: start: 20100610, end: 20100714
  9. OXAZEPAM [Concomitant]
     Dosage: 30MG PER DAY
     Route: 048
     Dates: start: 20100407, end: 20100412

REACTIONS (1)
  - HEPATIC ENZYME INCREASED [None]
